FAERS Safety Report 6121560-9 (Version None)
Quarter: 2009Q1

REPORT INFORMATION
  Report Type: 
  Country: None (occurrence: None)
  Receive Date: 20090317
  Receipt Date: 20090310
  Transmission Date: 20090719
  Serious: Yes (Hospitalization)
  Sender: FDA-Public Use
  Company Number: DE-BRISTOL-MYERS SQUIBB COMPANY-14545099

PATIENT
  Age: 66 Year
  Sex: Female

DRUGS (2)
  1. CETUXIMAB [Suspect]
     Indication: BREAST CANCER METASTATIC
     Dosage: TEMPORARILY DISCONTINUED ON 09-MAR-2009
     Route: 042
     Dates: start: 20081112
  2. CISPLATIN [Suspect]
     Indication: BREAST CANCER METASTATIC
     Dosage: MOST RECENT INFUSION= 23JAN09. TEMPORARILY DISCONTINUED ON 13-FEB-2009
     Route: 042
     Dates: start: 20081112

REACTIONS (1)
  - HYPERTENSION [None]
